FAERS Safety Report 9510657 (Version 2)
Quarter: 2014Q1

REPORT INFORMATION
  Report Type: Spontaneous
  Country: FR (occurrence: FR)
  Receive Date: 20130909
  Receipt Date: 20140113
  Transmission Date: 20141002
  Serious: Yes (Other)
  Sender: FDA-Public Use
  Company Number: FR-B.I. PHARMACEUTICALS,INC./RIDGEFIELD-2013-FF-02249FF

PATIENT
  Age: 71 Year
  Sex: Male

DRUGS (11)
  1. SPIRIVA [Suspect]
     Indication: ASTHMA
  2. OXALIPLATINE HOSPIRA [Suspect]
     Indication: CHOLANGIOCARCINOMA
     Route: 042
  3. BROMAZEPAM [Suspect]
     Indication: ANXIETY
     Route: 048
  4. GEMZAR [Suspect]
     Indication: CHOLANGIOCARCINOMA
     Route: 042
     Dates: start: 20130221
  5. SERETIDE [Suspect]
     Indication: ASTHMA
     Route: 055
  6. VENTOLINE [Suspect]
     Indication: ASTHMA
     Route: 055
  7. TAREG [Suspect]
     Indication: HYPERTENSION
     Dosage: 80 MG
     Route: 048
  8. ZOLPIDEM [Suspect]
     Indication: INSOMNIA
  9. OMEPRAZOLE [Suspect]
     Dosage: 40 MG
  10. FINASTERIDE [Suspect]
     Indication: PROSTATIC ADENOMA
     Route: 048
  11. FENOFIBRATE [Concomitant]
     Indication: HYPERCHOLESTEROLAEMIA
     Route: 048

REACTIONS (1)
  - Neuropathy peripheral [Not Recovered/Not Resolved]
